FAERS Safety Report 12082733 (Version 1)
Quarter: 2016Q1

REPORT INFORMATION
  Report Type: Other
  Country: US (occurrence: US)
  Receive Date: 20160217
  Receipt Date: 20160217
  Transmission Date: 20160526
  Serious: Yes (Congenital Anomaly)
  Sender: FDA-Public Use
  Company Number: US-LUPIN PHARMACEUTICALS INC.-2016-00668

PATIENT

DRUGS (6)
  1. ARIPIPRAZOLE. [Suspect]
     Active Substance: ARIPIPRAZOLE
     Dosage: 25MG
     Route: 064
  2. ZIPRASIDONE. [Suspect]
     Active Substance: ZIPRASIDONE
     Indication: MANIA
     Route: 064
  3. ARIPIPRAZOLE. [Suspect]
     Active Substance: ARIPIPRAZOLE
     Indication: PSYCHOTIC DISORDER
     Route: 064
  4. HALOPERIDOL. [Suspect]
     Active Substance: HALOPERIDOL
     Indication: MANIA
     Route: 064
  5. LITHIUM. [Suspect]
     Active Substance: LITHIUM
     Indication: MANIA
     Route: 064
  6. LITHIUM. [Suspect]
     Active Substance: LITHIUM
     Route: 064

REACTIONS (3)
  - Microcephaly [Unknown]
  - Foetal exposure during pregnancy [Unknown]
  - Hypospadias [Unknown]
